FAERS Safety Report 14381399 (Version 2)
Quarter: 2018Q1

REPORT INFORMATION
  Report Type: Spontaneous
  Country: JP (occurrence: JP)
  Receive Date: 20180112
  Receipt Date: 20180209
  Transmission Date: 20180509
  Serious: Yes (Death, Other)
  Sender: FDA-Public Use
  Company Number: PHJP2018JP000835

PATIENT
  Sex: Female

DRUGS (2)
  1. REVOLADE TAB [Suspect]
     Active Substance: ELTROMBOPAG
     Indication: APLASTIC ANAEMIA
     Dosage: 100 MG, UNK
     Route: 048
     Dates: start: 201709, end: 201801
  2. EXJADE [Suspect]
     Active Substance: DEFERASIROX
     Indication: APLASTIC ANAEMIA
     Dosage: 1000 MG, UNK
     Route: 048
     Dates: start: 201711, end: 201801

REACTIONS (2)
  - Respiratory arrest [Unknown]
  - Hypercapnia [Fatal]

NARRATIVE: CASE EVENT DATE: 20180110
